FAERS Safety Report 9029368 (Version 4)
Quarter: 2013Q3

REPORT INFORMATION
  Report Type: Spontaneous
  Country: SE (occurrence: SE)
  Receive Date: 20130125
  Receipt Date: 20130827
  Transmission Date: 20140515
  Serious: Yes (Hospitalization)
  Sender: FDA-Public Use
  Company Number: SE-JNJFOC-20130109657

PATIENT
  Age: 29 Year
  Sex: Female

DRUGS (4)
  1. REMICADE [Suspect]
     Indication: PSORIATIC ARTHROPATHY
     Route: 042
     Dates: start: 20111020, end: 20120913
  2. REMICADE [Suspect]
     Indication: PYODERMA GANGRENOSUM
     Route: 042
     Dates: start: 20111020, end: 20120913
  3. METHOTREXATE [Suspect]
     Indication: PSORIATIC ARTHROPATHY
     Route: 065
     Dates: start: 20111020, end: 20120913
  4. ANTI TUBERCULOSIS MEDICATION [Suspect]
     Indication: TUBERCULOSIS
     Route: 065
     Dates: start: 2012

REACTIONS (3)
  - Tuberculosis [Recovering/Resolving]
  - Arthropathy [Unknown]
  - Hepatotoxicity [Unknown]
